FAERS Safety Report 5263410-9 (Version None)
Quarter: 2007Q1

REPORT INFORMATION
  Report Type: 
  Country: None (occurrence: None)
  Receive Date: 20070313
  Receipt Date: 20070307
  Transmission Date: 20070707
  Serious: Yes (Hospitalization, Other)
  Sender: FDA-Public Use
  Company Number: 2007UW04198

PATIENT
  Age: 80 Year
  Sex: Female

DRUGS (4)
  1. NEXIUM [Suspect]
     Route: 048
  2. COUMADIN [Concomitant]
  3. LEXAPRO [Concomitant]
  4. SODIUM CHLORIDE [Concomitant]
     Route: 042

REACTIONS (2)
  - HIP FRACTURE [None]
  - THROMBOCYTOPENIA [None]
